FAERS Safety Report 9330139 (Version 2)
Quarter: 2013Q4

REPORT INFORMATION
  Report Type: Spontaneous
  Country: US (occurrence: US)
  Receive Date: 20130604
  Receipt Date: 20131017
  Transmission Date: 20140711
  Serious: No
  Sender: FDA-Public Use
  Company Number: US-ASTRAZENECA-2013SE36165

PATIENT
  Age: 68 Year
  Sex: Male
  Weight: 85.7 kg

DRUGS (12)
  1. PULMICORT FLEXHALER [Suspect]
     Indication: LUNG DISORDER
     Dosage: 180 MCG, 2 PUFFS DAILY
     Route: 055
     Dates: start: 2007, end: 2007
  2. PULMICORT FLEXHALER [Suspect]
     Indication: LUNG DISORDER
     Dosage: AS REQUIRED
     Route: 055
  3. FLUTICASONE PROPIONATE [Concomitant]
     Indication: MULTIPLE ALLERGIES
     Dosage: PRN
     Route: 045
  4. FLUTICASONE PROPIONATE [Concomitant]
     Indication: NASAL CONGESTION
     Dosage: PRN
     Route: 045
  5. ALBUTEROL [Concomitant]
     Indication: INHALATION THERAPY
     Dosage: PRN
     Route: 055
     Dates: end: 201301
  6. ADVAIR [Concomitant]
     Indication: LUNG DISORDER
     Dosage: 2 PUFFS BID
     Route: 055
  7. PNEUMONIA VACCINE [Concomitant]
     Dosage: EVERY THREE YEARS
  8. SIMVASTATIN [Concomitant]
     Indication: BLOOD CHOLESTEROL INCREASED
     Dates: start: 2012
  9. METFORMIN [Concomitant]
     Indication: DIABETES MELLITUS
  10. TERAZOSIN [Concomitant]
     Indication: PROSTATOMEGALY
     Dates: start: 2011
  11. PREDNISONE [Concomitant]
     Route: 048
  12. Z PACK [Concomitant]
     Indication: NASOPHARYNGITIS

REACTIONS (6)
  - Nasopharyngitis [Unknown]
  - Epistaxis [Unknown]
  - Diabetes mellitus [Unknown]
  - Prostatomegaly [Unknown]
  - Blood cholesterol increased [Unknown]
  - Off label use [Unknown]
